FAERS Safety Report 15058268 (Version 2)
Quarter: 2018Q3

REPORT INFORMATION
  Report Type: Report from Study
  Country: None (occurrence: US)
  Receive Date: 20180625
  Receipt Date: 20180821
  Transmission Date: 20181010
  Serious: Yes (Other)
  Sender: FDA-Public Use
  Company Number: US-ABBVIE-18K-163-2396562-00

PATIENT
  Age: 63 Year
  Sex: Female

DRUGS (1)
  1. HUMIRA [Suspect]
     Active Substance: ADALIMUMAB
     Indication: PSORIASIS
     Route: 058
     Dates: end: 2018

REACTIONS (5)
  - Mass [Unknown]
  - Hysterectomy [Unknown]
  - Stress [Unknown]
  - Psoriasis [Recovering/Resolving]
  - Salpingo-oophorectomy bilateral [Recovering/Resolving]

NARRATIVE: CASE EVENT DATE: 2018
